FAERS Safety Report 9472837 (Version 1)
Quarter: 2013Q3

REPORT INFORMATION
  Report Type: Spontaneous
  Country: GB (occurrence: GB)
  Receive Date: 20130823
  Receipt Date: 20130823
  Transmission Date: 20140515
  Serious: Yes (Disabling, Other)
  Sender: FDA-Public Use
  Company Number: GB-TEVA-426610ISR

PATIENT
  Age: 34 Year
  Sex: Male
  Weight: 69.85 kg

DRUGS (1)
  1. CIPROFLOXACIN [Suspect]
     Indication: EPIDIDYMITIS
     Dosage: 1000 MILLIGRAM DAILY; 500MG TWICE DAILY
     Route: 048
     Dates: start: 20130121, end: 20130122

REACTIONS (19)
  - Tendonitis [Not Recovered/Not Resolved]
  - Joint crepitation [Not Recovered/Not Resolved]
  - Myalgia [Recovered/Resolved]
  - Muscular weakness [Recovered/Resolved]
  - Eye pain [Recovered/Resolved with Sequelae]
  - Abnormal sensation in eye [Recovered/Resolved]
  - Visual acuity reduced [Recovered/Resolved with Sequelae]
  - Tinnitus [Not Recovered/Not Resolved]
  - Ear pain [Recovered/Resolved]
  - Toothache [Recovered/Resolved]
  - Mucous membrane disorder [Recovered/Resolved]
  - Anxiety [Recovered/Resolved]
  - Tendon pain [Recovered/Resolved with Sequelae]
  - Insomnia [Recovered/Resolved]
  - Disturbance in sexual arousal [Recovered/Resolved]
  - Abasia [Unknown]
  - Impaired driving ability [Unknown]
  - Condition aggravated [Unknown]
  - Pain [Not Recovered/Not Resolved]
